FAERS Safety Report 6677575-5 (Version None)
Quarter: 2010Q2

REPORT INFORMATION
  Report Type: 
  Country: None (occurrence: None)
  Receive Date: 20100412
  Receipt Date: 20100121
  Transmission Date: 20101027
  Serious: No
  Sender: FDA-Public Use
  Company Number: CA-ALEXION-A201000073

PATIENT
  Sex: Female

DRUGS (5)
  1. SOLIRIS [Suspect]
     Indication: PAROXYSMAL NOCTURNAL HAEMOGLOBINURIA
     Dosage: 600 MG, QW
     Route: 042
     Dates: start: 20091202, end: 20091223
  2. SOLIRIS [Suspect]
     Dosage: 900 MG, Q2W
     Route: 042
     Dates: start: 20091230
  3. WARFARIN [Concomitant]
     Dosage: 7 MG, QD
     Route: 048
  4. FOLIC ACID [Concomitant]
     Dosage: 5 MG, QD
     Route: 048
  5. IRON [Concomitant]
     Dosage: UNK
     Route: 048

REACTIONS (3)
  - NAUSEA [None]
  - URINARY TRACT INFECTION [None]
  - URINE COLOUR ABNORMAL [None]
